FAERS Safety Report 16373208 (Version 2)
Quarter: 2019Q2

REPORT INFORMATION
  Report Type: Report from Study
  Country: US (occurrence: US)
  Receive Date: 20190530
  Receipt Date: 20190614
  Transmission Date: 20190711
  Serious: Yes (Hospitalization)
  Sender: FDA-Public Use
  Company Number: US-ACTELION-A-NJ2019-191069

PATIENT
  Sex: Female
  Weight: 90.7 kg

DRUGS (9)
  1. NORCO [Concomitant]
     Active Substance: ACETAMINOPHEN\HYDROCODONE BITARTRATE
  2. FLONASE [Concomitant]
     Active Substance: FLUTICASONE PROPIONATE
  3. ALBUTEROL HFA [Concomitant]
     Active Substance: ALBUTEROL SULFATE
  4. OPSUMIT [Concomitant]
     Active Substance: MACITENTAN
     Route: 048
  5. ADVAIR HFA [Concomitant]
     Active Substance: FLUTICASONE PROPIONATE\SALMETEROL XINAFOATE
  6. VELETRI [Suspect]
     Active Substance: EPOPROSTENOL
     Indication: PULMONARY ARTERIAL HYPERTENSION
     Dosage: 21.7 NG/KG, PER MIN
     Route: 042
  7. REVATIO [Concomitant]
     Active Substance: SILDENAFIL CITRATE
  8. NALOXONE 1F [Concomitant]
  9. ONDANSETRON [Concomitant]
     Active Substance: ONDANSETRON

REACTIONS (6)
  - Pneumonia [Unknown]
  - Pyrexia [Unknown]
  - Sepsis [Unknown]
  - Lung infection [Unknown]
  - Dyspnoea [Unknown]
  - Oxygen saturation decreased [Unknown]
